FAERS Safety Report 4274236-7 (Version None)
Quarter: 2004Q1

REPORT INFORMATION
  Report Type: 
  Country: None (occurrence: None)
  Receive Date: 20040115
  Receipt Date: 20031223
  Transmission Date: 20041129
  Serious: Yes (Hospitalization)
  Sender: FDA-Public Use
  Company Number: 204106

PATIENT
  Age: 61 Year
  Sex: Female
  Weight: 79 kg

DRUGS (11)
  1. HERCEPTIN [Suspect]
     Indication: BREAST CANCER METASTATIC
     Dosage: SEE IMAGE
     Route: 042
     Dates: start: 20031118, end: 20031118
  2. HERCEPTIN [Suspect]
     Indication: BREAST CANCER METASTATIC
     Dosage: SEE IMAGE
     Route: 042
     Dates: start: 20031125, end: 20031218
  3. TAXOTERE [Suspect]
     Indication: BREAST CANCER METASTATIC
     Dosage: 140 MG, Q3W, INTRAVENOUS
     Route: 042
     Dates: start: 20031119, end: 20031212
  4. CARBOPLATIN [Suspect]
     Dosage: 800 MG, Q3W, INTRAVENOUS
     Route: 042
     Dates: start: 20031119, end: 20031212
  5. METOCLOPRAMIDE [Concomitant]
  6. DEXAMETHASONE [Concomitant]
  7. ALENDRONATE (ALENDRONATE SODIUM) [Concomitant]
  8. PREDNISOLONE [Concomitant]
  9. VENLAFAXINE (VENLAFAXINE HYDROCHLORIDE) [Concomitant]
  10. CELECOXIB (CELECOXIB) [Concomitant]
  11. OMEPRAZOLE [Concomitant]

REACTIONS (3)
  - ABDOMINAL PAIN UPPER [None]
  - DEHYDRATION [None]
  - HEADACHE [None]
